FAERS Safety Report 4957788-0 (Version None)
Quarter: 2006Q1

REPORT INFORMATION
  Report Type: 
  Country: None (occurrence: None)
  Receive Date: 20060330
  Receipt Date: 20060316
  Transmission Date: 20060701
  Serious: Yes (Other)
  Sender: FDA-Public Use
  Company Number: CA-BRISTOL-MYERS SQUIBB COMPANY-13317326

PATIENT
  Age: 73 Year
  Sex: Female

DRUGS (24)
  1. CETUXIMAB [Suspect]
     Indication: NON-SMALL CELL LUNG CANCER
     Route: 042
     Dates: start: 20060202, end: 20060202
  2. CARBOPLATIN [Suspect]
     Indication: NON-SMALL CELL LUNG CANCER
     Route: 042
     Dates: start: 20060202, end: 20060202
  3. GEMCITABINE [Suspect]
     Indication: NON-SMALL CELL LUNG CANCER
     Route: 042
     Dates: start: 20060209, end: 20060209
  4. DEXAMETHASONE TAB [Concomitant]
     Dates: start: 20050824
  5. ONDANSETRON [Concomitant]
     Dates: start: 20050824
  6. EPOETIN ALFA [Concomitant]
     Dates: start: 20050906
  7. METOCLOPRAMIDE [Concomitant]
     Dates: start: 20051004
  8. ZOPICLONE [Concomitant]
     Dates: start: 20051003
  9. ANUSOL [Concomitant]
     Dates: start: 20051102
  10. SENNA [Concomitant]
     Dates: start: 20051103
  11. DOCUSATE CALCIUM [Concomitant]
     Dates: start: 20051103
  12. FUROSEMIDE [Concomitant]
     Dates: start: 20051105
  13. SILVER SULFADIAZINE [Concomitant]
     Dates: start: 20051206
  14. ATACAND [Concomitant]
     Dates: start: 20060216
  15. FLAMAZINE [Concomitant]
     Dates: start: 20060207, end: 20060228
  16. CEFTAZIDIME [Concomitant]
     Dates: start: 20060214, end: 20060228
  17. LEVOTHYROXINE SODIUM [Concomitant]
     Dates: start: 20060216
  18. IBUPROFEN [Concomitant]
     Dates: start: 20060227
  19. LOSEC [Concomitant]
     Dates: start: 20051206
  20. IMMOVANE [Concomitant]
     Dates: start: 20060123
  21. MAXERAN [Concomitant]
     Dates: start: 20060216
  22. ELTROXIN [Concomitant]
     Dates: start: 20060216
  23. TYLENOL (CAPLET) [Concomitant]
     Dates: start: 20060217
  24. EPREX [Concomitant]
     Dates: start: 20050916

REACTIONS (1)
  - GERSTMANN'S SYNDROME [None]
